FAERS Safety Report 5767922-0 (Version None)
Quarter: 2008Q2

REPORT INFORMATION
  Report Type: 
  Country: None (occurrence: None)
  Receive Date: 20080606
  Receipt Date: 20080522
  Transmission Date: 20081010
  Serious: Yes (Other)
  Sender: FDA-Public Use
  Company Number: JP-1165617

PATIENT
  Age: 14 Year
  Sex: Female

DRUGS (7)
  1. PATANOL [Suspect]
     Indication: CONJUNCTIVITIS ALLERGIC
     Dosage: OPHTHALMIC, OPHTHALMIC
     Route: 047
     Dates: start: 20080325, end: 20080326
  2. PATANOL [Suspect]
     Indication: RHINITIS ALLERGIC
     Dosage: OPHTHALMIC, OPHTHALMIC
     Route: 047
     Dates: start: 20080325, end: 20080326
  3. PATANOL [Suspect]
     Indication: CONJUNCTIVITIS ALLERGIC
     Dosage: OPHTHALMIC, OPHTHALMIC
     Route: 047
     Dates: start: 20080309
  4. PATANOL [Suspect]
     Indication: RHINITIS ALLERGIC
     Dosage: OPHTHALMIC, OPHTHALMIC
     Route: 047
     Dates: start: 20080309
  5. CLARITIN [Concomitant]
  6. FLONASE [Concomitant]
  7. CORTICOSTEROID NOS (CORTICOSTEROID NOS) [Concomitant]

REACTIONS (10)
  - COUGH [None]
  - DYSGEUSIA [None]
  - ERYTHEMA OF EYELID [None]
  - EYE PRURITUS [None]
  - EYELID OEDEMA [None]
  - HYPERSENSITIVITY [None]
  - NASAL CONGESTION [None]
  - OCULAR HYPERAEMIA [None]
  - RHINORRHOEA [None]
  - SNEEZING [None]
